FAERS Safety Report 11583392 (Version 1)
Quarter: 2015Q3

REPORT INFORMATION
  Report Type: Spontaneous
  Country: US (occurrence: None)
  Receive Date: 20150930
  Receipt Date: 20150930
  Transmission Date: 20151125
  Serious: No
  Sender: FDA-Public Use
  Company Number: None

PATIENT
  Age: 68 Year
  Sex: Female
  Weight: 66.23 kg

DRUGS (11)
  1. NAC [Concomitant]
  2. VITAMIN B COMPLEX [Concomitant]
     Active Substance: CYANOCOBALAMIN\DEXPANTHENOL\NIACINAMIDE\PYRIDOXINE HYDROCHLORIDE\RIBOFLAVIN 5^-PHOSPHATE SODIUM\THIAMINE HYDROCHLORIDE\VITAMIN B COMPLEX
  3. CLONIDINE. [Concomitant]
     Active Substance: CLONIDINE
  4. ANASTRAZOLE [Concomitant]
     Active Substance: ANASTROZOLE
  5. VITAMIN A [Concomitant]
     Active Substance: VITAMIN A
  6. GLUCOSAMINE [Concomitant]
     Active Substance: GLUCOSAMINE
  7. COZAAR [Concomitant]
     Active Substance: LOSARTAN POTASSIUM
  8. RENVELA [Concomitant]
     Active Substance: SEVELAMER CARBONATE
  9. LORAZEPAM. [Concomitant]
     Active Substance: LORAZEPAM
  10. CLOPIDOGREL [Suspect]
     Active Substance: CLOPIDOGREL BISULFATE
     Indication: TRANSIENT ISCHAEMIC ATTACK
     Dosage: 1 PILLS
     Route: 048
     Dates: start: 20150916, end: 20150923
  11. COREG [Concomitant]
     Active Substance: CARVEDILOL

REACTIONS (3)
  - Anaemia [None]
  - Haematochezia [None]
  - Epistaxis [None]

NARRATIVE: CASE EVENT DATE: 20150923
